FAERS Safety Report 7331131-4 (Version None)
Quarter: 2011Q1

REPORT INFORMATION
  Report Type: 
  Country: None (occurrence: None)
  Receive Date: 20110304
  Receipt Date: 20110217
  Transmission Date: 20110831
  Serious: Yes (Other)
  Sender: FDA-Public Use
  Company Number: SG-RANBAXY-2011RR-41632

PATIENT
  Sex: Female

DRUGS (6)
  1. ALPRAZOLAM [Suspect]
     Indication: PANIC ATTACK
  2. ALPRAZOLAM [Suspect]
     Dosage: 0.125 MG, UNK
  3. ALPRAZOLAM [Suspect]
  4. FLUOXETINE [Suspect]
     Indication: OBSESSIVE-COMPULSIVE DISORDER
     Dosage: 20 MG, SINGLE
  5. FLUOXETINE [Suspect]
     Indication: PANIC ATTACK
  6. ALPRAZOLAM [Suspect]
     Indication: OBSESSIVE-COMPULSIVE DISORDER
     Dosage: 0.25 MG, SINGLE

REACTIONS (3)
  - DRUG INTERACTION [None]
  - SUICIDAL IDEATION [None]
  - SOMNOLENCE [None]
